FAERS Safety Report 14561540 (Version 1)
Quarter: 2018Q1

REPORT INFORMATION
  Report Type: Spontaneous
  Country: CA (occurrence: CA)
  Receive Date: 20180222
  Receipt Date: 20180222
  Transmission Date: 20180509
  Serious: Yes (Hospitalization, Other)
  Sender: FDA-Public Use
  Company Number: CA-009507513-1802CAN009155

PATIENT
  Age: 64 Year
  Sex: Male

DRUGS (1)
  1. ZEPATIER [Suspect]
     Active Substance: ELBASVIR\GRAZOPREVIR
     Indication: HEPATITIS C
     Dosage: UNK
     Route: 048

REACTIONS (4)
  - Metabolic disorder [Unknown]
  - Nephritis [Unknown]
  - Hepatitis C [Unknown]
  - Hypoxia [Unknown]

NARRATIVE: CASE EVENT DATE: 20180215
